FAERS Safety Report 10437218 (Version 2)
Quarter: 2014Q4

REPORT INFORMATION
  Report Type: Spontaneous
  Country: US (occurrence: US)
  Receive Date: 20140908
  Receipt Date: 20141205
  Transmission Date: 20150528
  Serious: Yes (Other)
  Sender: FDA-Public Use
  Company Number: US-BRISTOL-MYERS SQUIBB COMPANY-20884029

PATIENT
  Age: 44 Year
  Sex: Male
  Weight: 122.45 kg

DRUGS (4)
  1. ABILIFY [Suspect]
     Active Substance: ARIPIPRAZOLE
     Indication: BIPOLAR DISORDER
     Dosage: ABILIFY 8 MGS DAILY BUT IS PRESCRIBED 2 MG TABLETS
     Dates: start: 20140407, end: 20140523
  2. LAMOTRIGINE. [Concomitant]
     Active Substance: LAMOTRIGINE
  3. BUPROPION [Concomitant]
     Active Substance: BUPROPION
  4. TESTOSTERONE. [Concomitant]
     Active Substance: TESTOSTERONE

REACTIONS (6)
  - Weight increased [Unknown]
  - Asthenia [Unknown]
  - Drug dose omission [Unknown]
  - Suicidal ideation [Unknown]
  - Somnolence [Unknown]
  - Depression [Unknown]

NARRATIVE: CASE EVENT DATE: 2014
